FAERS Safety Report 10034362 (Version 4)
Quarter: 2014Q2

REPORT INFORMATION
  Report Type: Spontaneous
  Country: JP (occurrence: JP)
  Receive Date: 20140325
  Receipt Date: 20140521
  Transmission Date: 20141212
  Serious: Yes (Death, Other)
  Sender: FDA-Public Use
  Company Number: JP-ROCHE-1367083

PATIENT
  Age: 37 Year
  Sex: Female
  Weight: 38 kg

DRUGS (8)
  1. TAMIFLU [Suspect]
     Indication: INFLUENZA
     Route: 048
     Dates: start: 20140312, end: 20140312
  2. CERCINE [Suspect]
     Indication: CONVULSION
     Route: 042
     Dates: start: 20140312, end: 20140312
  3. ANHIBA [Suspect]
     Indication: PYREXIA
     Route: 054
     Dates: start: 20140312, end: 20140312
  4. DIAZEPAM [Concomitant]
     Indication: CONVULSION
     Dosage: DOSAGE IS UNCERTAIN
     Route: 065
  5. DIAZEPAM [Concomitant]
     Dosage: DRUG REPORTED AS : CERCINE
     Route: 042
  6. TEGRETOL [Concomitant]
     Route: 048
  7. SELENICA-R [Concomitant]
     Route: 048
  8. WASSER V [Concomitant]
     Route: 048

REACTIONS (9)
  - Convulsion [Fatal]
  - Blood pressure decreased [Fatal]
  - Respiratory depression [Fatal]
  - Hyperkalaemia [Unknown]
  - Epilepsy [Recovering/Resolving]
  - Bradycardia [Not Recovered/Not Resolved]
  - Blood glucose decreased [Unknown]
  - Renal failure acute [Unknown]
  - Agitation [Recovered/Resolved]
